FAERS Safety Report 7536415-2 (Version None)
Quarter: 2011Q2

REPORT INFORMATION
  Report Type: 
  Country: None (occurrence: None)
  Receive Date: 20110609
  Receipt Date: 20110530
  Transmission Date: 20111010
  Serious: Yes (Life-Threatening)
  Sender: FDA-Public Use
  Company Number: HU-JNJFOC-20101005529

PATIENT
  Sex: Male

DRUGS (9)
  1. ABIRATERONE ACETATE [Suspect]
     Route: 048
  2. PREDNISOLONE [Suspect]
     Indication: PROSTATE CANCER METASTATIC
     Route: 048
  3. GOSERELIN ACETATE [Concomitant]
     Indication: HORMONE THERAPY
     Route: 030
     Dates: start: 20081016
  4. METAMIZOLUM [Concomitant]
     Indication: CANCER PAIN
     Route: 048
     Dates: start: 20080810
  5. GOSERELIN ACETATE [Concomitant]
     Route: 030
     Dates: start: 20060106
  6. GOSERELIN ACETATE [Concomitant]
     Route: 030
     Dates: start: 20060106
  7. GOSERELIN ACETATE [Concomitant]
     Indication: PROSTATE CANCER METASTATIC
     Route: 030
     Dates: start: 20081016
  8. AMLODIPINE [Concomitant]
     Indication: HYPERTONIA
     Route: 048
     Dates: start: 20080703
  9. ABIRATERONE ACETATE [Suspect]
     Indication: PROSTATE CANCER METASTATIC
     Route: 048
     Dates: start: 20081016

REACTIONS (1)
  - HYPOPHOSPHATAEMIA [None]
